FAERS Safety Report 9539301 (Version 3)
Quarter: 2013Q4

REPORT INFORMATION
  Report Type: Spontaneous
  Country: FR (occurrence: FR)
  Receive Date: 20130920
  Receipt Date: 20131203
  Transmission Date: 20140711
  Serious: Yes (Hospitalization)
  Sender: FDA-Public Use
  Company Number: FR-SANOFI-AVENTIS-2013SA091774

PATIENT
  Age: 69 Year
  Sex: Female

DRUGS (4)
  1. ARAVA [Suspect]
     Indication: RHEUMATOID ARTHRITIS
     Route: 048
     Dates: start: 20110501, end: 20120901
  2. CORTICOSTEROID NOS [Concomitant]
     Indication: RHEUMATOID ARTHRITIS
     Route: 048
  3. PARACETAMOL [Concomitant]
     Indication: RHEUMATOID ARTHRITIS
  4. NSAID^S [Concomitant]
     Indication: RHEUMATOID ARTHRITIS

REACTIONS (1)
  - Type 1 diabetes mellitus [Not Recovered/Not Resolved]
